FAERS Safety Report 6055727-5 (Version None)
Quarter: 2009Q1

REPORT INFORMATION
  Report Type: 
  Country: None (occurrence: None)
  Receive Date: 20090128
  Receipt Date: 20090123
  Transmission Date: 20090719
  Serious: Yes (Death, Other)
  Sender: FDA-Public Use
  Company Number: JP-BRISTOL-MYERS SQUIBB COMPANY-14464671

PATIENT
  Age: 87 Year
  Sex: Male

DRUGS (1)
  1. CEFEPIME [Suspect]
     Indication: PNEUMONIA
     Route: 041
     Dates: start: 20081226, end: 20090102

REACTIONS (2)
  - HEPATIC FUNCTION ABNORMAL [None]
  - MULTI-ORGAN FAILURE [None]
